FAERS Safety Report 16146561 (Version 3)
Quarter: 2019Q2

REPORT INFORMATION
  Report Type: Report from Study
  Country: US (occurrence: US)
  Receive Date: 20190402
  Receipt Date: 20190618
  Transmission Date: 20190711
  Serious: Yes (Other)
  Sender: FDA-Public Use
  Company Number: US-TESAROUBC-2018-TSO0978-US

PATIENT
  Age: 70 Year
  Sex: Female

DRUGS (3)
  1. ZEJULA [Suspect]
     Active Substance: NIRAPARIB
     Dosage: 200 MG, QD
     Route: 048
  2. ZEJULA [Suspect]
     Active Substance: NIRAPARIB
     Indication: FALLOPIAN TUBE CANCER
     Dosage: 300 MG, QD IN THE AM
     Dates: start: 20180911, end: 20180925
  3. ZEJULA [Suspect]
     Active Substance: NIRAPARIB
     Dosage: 100 MG, QD, AM W/FOOD
     Route: 048

REACTIONS (22)
  - Recurrent cancer [Unknown]
  - Nasal congestion [Recovering/Resolving]
  - Extrasystoles [Recovering/Resolving]
  - Computerised tomogram abnormal [Unknown]
  - Oropharyngeal pain [Recovered/Resolved]
  - Lymphadenopathy [Unknown]
  - Stomatitis [Recovered/Resolved]
  - Insomnia [Not Recovered/Not Resolved]
  - Malignant neoplasm progression [Unknown]
  - Carbohydrate antigen 125 increased [Not Recovered/Not Resolved]
  - Anaemia [Recovering/Resolving]
  - Vomiting [Recovered/Resolved]
  - Dry mouth [Not Recovered/Not Resolved]
  - Eye disorder [Not Recovered/Not Resolved]
  - White blood cell count decreased [Unknown]
  - Nausea [Recovered/Resolved]
  - Bone marrow failure [Recovered/Resolved]
  - Fatigue [Not Recovered/Not Resolved]
  - Constipation [Recovering/Resolving]
  - Ear disorder [Not Recovered/Not Resolved]
  - Pruritus [Recovered/Resolved]
  - Platelet count decreased [Unknown]

NARRATIVE: CASE EVENT DATE: 201809
